FAERS Safety Report 24715179 (Version 1)
Quarter: 2024Q4

REPORT INFORMATION
  Report Type: Report from Study
  Country: US (occurrence: US)
  Receive Date: 20241210
  Receipt Date: 20241210
  Transmission Date: 20250114
  Serious: Yes (Other)
  Sender: ABBVIE
  Company Number: US-ABBVIE-6036053

PATIENT
  Sex: Female

DRUGS (1)
  1. HUMIRA [Suspect]
     Active Substance: ADALIMUMAB
     Indication: Psoriatic arthropathy
     Dosage: CITRATE FREE, FORM STRENGTH: 40MG/0.4 ML, 1 INJECTOR
     Route: 058

REACTIONS (4)
  - Systemic lupus erythematosus [Unknown]
  - Brain fog [Unknown]
  - Dyspnoea [Unknown]
  - Adverse drug reaction [Unknown]
